FAERS Safety Report 12199685 (Version 3)
Quarter: 2016Q4

REPORT INFORMATION
  Report Type: Report from Study
  Country: US (occurrence: US)
  Receive Date: 20160322
  Receipt Date: 20161107
  Transmission Date: 20170207
  Serious: Yes (Hospitalization)
  Sender: FDA-Public Use
  Company Number: US-BAYER-2016-053832

PATIENT
  Age: 53 Year
  Sex: Female

DRUGS (5)
  1. OPSUMIT [Concomitant]
     Active Substance: MACITENTAN
  2. ADEMPAS [Suspect]
     Active Substance: RIOCIGUAT
     Indication: PULMONARY HYPERTENSION
     Dosage: UNK
     Dates: start: 20151110
  3. ADEMPAS [Suspect]
     Active Substance: RIOCIGUAT
     Indication: PULMONARY HYPERTENSION
     Dosage: 1 MG, TID
     Route: 048
  4. ADEMPAS [Suspect]
     Active Substance: RIOCIGUAT
     Indication: PULMONARY HYPERTENSION
     Dosage: 1 MG, TID
     Route: 048
     Dates: start: 20160411
  5. VANCOMYCIN [Suspect]
     Active Substance: VANCOMYCIN
     Indication: ARTHRITIS INFECTIVE
     Dosage: UNK
     Route: 042
     Dates: start: 20160403

REACTIONS (7)
  - Product use issue [None]
  - Cough [None]
  - Arthritis infective [None]
  - Arthralgia [None]
  - Rash [Not Recovered/Not Resolved]
  - Rash pruritic [Not Recovered/Not Resolved]
  - Transfusion [None]

NARRATIVE: CASE EVENT DATE: 20160316
